FAERS Safety Report 20771313 (Version 3)
Quarter: 2022Q2

REPORT INFORMATION
  Report Type: Report from Study
  Country: KR (occurrence: None)
  Receive Date: 20220429
  Receipt Date: 20220517
  Transmission Date: 20220721
  Serious: Yes (Hospitalization)
  Sender: FDA-Public Use
  Company Number: KR-ROCHE-3085011

PATIENT
  Age: 78 Year
  Sex: Female
  Weight: 62.3 kg

DRUGS (31)
  1. POLATUZUMAB VEDOTIN [Suspect]
     Active Substance: POLATUZUMAB VEDOTIN
     Indication: Diffuse large B-cell lymphoma
     Dosage: DATE OF LAST DOSE 114 MG OF DRUG POLATUZUMAB VEDOTIN PRIOR TO AE/SAE: 14/MAR/2022
     Route: 042
     Dates: start: 20220221
  2. RITUXIMAB [Suspect]
     Active Substance: RITUXIMAB
     Indication: Diffuse large B-cell lymphoma
     Dosage: DATE OF LAST DOSE 626 MG OF RITUXIMAB ADMINISTERED PRIOR TO AE/SAE: 14/MAR/2022
     Route: 041
     Dates: start: 20220221
  3. GEMCITABINE [Suspect]
     Active Substance: GEMCITABINE
     Indication: Diffuse large B-cell lymphoma
     Dosage: DATE OF LAST DOSE 1670 MG OF DRUG GEMCITABINE ADMINISTERED PRIOR TO AE/SAE : 15/MAR/2022
     Route: 042
     Dates: start: 20220222
  4. OXALIPLATIN [Suspect]
     Active Substance: OXALIPLATIN
     Indication: Diffuse large B-cell lymphoma
     Dosage: DATE OF LAST DOSE 167 MG OF DRUG OXALIPLATIN ADMINISTERED PRIOR TO AE/SAE: 15/MAR/2022
     Route: 042
     Dates: start: 20220222
  5. SYNTHROID [Concomitant]
     Active Substance: LEVOTHYROXINE SODIUM
     Indication: Thyroid mass
     Route: 048
     Dates: start: 20220214
  6. PREGABALIN [Concomitant]
     Active Substance: PREGABALIN
     Indication: Peripheral sensory neuropathy
     Route: 048
     Dates: start: 20220214
  7. TUVERO [Concomitant]
     Indication: Hypertension
     Dosage: 1 TABLET
     Route: 048
     Dates: start: 20220214, end: 20220222
  8. CALCIUM CARBONATE\CHOLECALCIFEROL [Concomitant]
     Active Substance: CALCIUM CARBONATE\CHOLECALCIFEROL
     Dosage: 1 TABLET
     Route: 048
     Dates: start: 20220214, end: 20220321
  9. DILTIAZEM [Concomitant]
     Active Substance: DILTIAZEM
     Indication: Hypertension
     Dosage: 1 TABLET
     Route: 048
     Dates: start: 20220214
  10. MOLSIDOMINE [Concomitant]
     Active Substance: MOLSIDOMINE
     Indication: Hypertension
     Dosage: 0.5 TABLET
     Route: 048
     Dates: start: 20220214
  11. FIMASARTAN [Concomitant]
     Active Substance: FIMASARTAN
     Indication: Hypertension
     Route: 048
     Dates: start: 20220221, end: 20220222
  12. FIMASARTAN [Concomitant]
     Active Substance: FIMASARTAN
     Route: 048
     Dates: start: 20220223
  13. NEPHRAMINE [Concomitant]
     Active Substance: CYSTEINE\CYSTEINE HYDROCHLORIDE\HISTIDINE\ISOLEUCINE\LEUCINE\LYSINE\LYSINE ACETATE\METHIONINE\PHENYL
     Route: 042
     Dates: start: 20220228, end: 20220228
  14. NEPHRAMINE [Concomitant]
     Active Substance: CYSTEINE\CYSTEINE HYDROCHLORIDE\HISTIDINE\ISOLEUCINE\LEUCINE\LYSINE\LYSINE ACETATE\METHIONINE\PHENYL
     Route: 042
     Dates: start: 20220303, end: 20220303
  15. NEPHRAMINE [Concomitant]
     Active Substance: CYSTEINE\CYSTEINE HYDROCHLORIDE\HISTIDINE\ISOLEUCINE\LEUCINE\LYSINE\LYSINE ACETATE\METHIONINE\PHENYL
     Route: 042
     Dates: start: 20220325, end: 20220325
  16. ENTECAVIR [Concomitant]
     Active Substance: ENTECAVIR
     Route: 048
     Dates: start: 20220221
  17. MONTMORILLONITE [Concomitant]
     Active Substance: MONTMORILLONITE
     Indication: Diarrhoea
     Route: 048
     Dates: start: 20220228
  18. LOPERAMIDE [Concomitant]
     Active Substance: LOPERAMIDE
     Indication: Diarrhoea
     Route: 048
     Dates: start: 20220228
  19. TRIMEBUTINE [Concomitant]
     Active Substance: TRIMEBUTINE
     Indication: Diarrhoea
     Route: 048
     Dates: start: 20220228
  20. CEFTRIAXONE [Concomitant]
     Active Substance: CEFTRIAXONE
     Indication: Oropharyngeal pain
     Route: 042
     Dates: start: 20220422, end: 20220423
  21. CLINDAMYCIN [Concomitant]
     Active Substance: CLINDAMYCIN
     Indication: Oropharyngeal pain
     Route: 042
     Dates: start: 20220422, end: 20220423
  22. CEFEPIME [Concomitant]
     Active Substance: CEFEPIME HYDROCHLORIDE
     Indication: Thrombophlebitis
     Route: 042
     Dates: start: 20220425, end: 20220427
  23. ROSUVASTATIN [Concomitant]
     Active Substance: ROSUVASTATIN
     Route: 048
  24. TRIPEGFILGRASTIM [Concomitant]
     Route: 058
     Dates: start: 20220504, end: 20220504
  25. BACILLUS SUBTILIS [Concomitant]
     Active Substance: BACILLUS SUBTILIS
     Indication: Diarrhoea
     Route: 048
     Dates: start: 20220228
  26. MOSAPRIDE [Concomitant]
     Active Substance: MOSAPRIDE
     Indication: Diarrhoea
     Route: 048
     Dates: start: 20220303
  27. MEGESTROL ACETATE [Concomitant]
     Active Substance: MEGESTROL ACETATE
     Route: 048
     Dates: start: 20220422
  28. URSODIOL [Concomitant]
     Active Substance: URSODIOL
     Indication: Alanine aminotransferase increased
     Route: 048
     Dates: start: 20220428
  29. PENNEL (SOUTH KOREA) [Concomitant]
     Indication: Aspartate aminotransferase increased
     Route: 048
     Dates: start: 20220428
  30. ACETYLCYSTEINE [Concomitant]
     Active Substance: ACETYLCYSTEINE
     Route: 048
     Dates: start: 20220504
  31. COUGH SYRUP (UNK INGREDIENTS) [Concomitant]

REACTIONS (1)
  - Thrombophlebitis [Recovered/Resolved]

NARRATIVE: CASE EVENT DATE: 20220418
